FAERS Safety Report 7598003-1 (Version None)
Quarter: 2011Q3

REPORT INFORMATION
  Report Type: 
  Country: None (occurrence: None)
  Receive Date: 20110708
  Receipt Date: 20110628
  Transmission Date: 20111222
  Serious: Yes (Other)
  Sender: FDA-Public Use
  Company Number: FR-ABBOTT-11P-056-0835099-00

PATIENT
  Age: 70 Year
  Sex: Female

DRUGS (5)
  1. OPTIMA SOLEIL (SUN) [Concomitant]
     Indication: TANNING
     Dosage: 2 TABLETS DAILY IN SPRING AND SUMMER
  2. LEXOMIL [Concomitant]
     Indication: ANXIETY
  3. FENOFIBRATE [Suspect]
     Indication: HYPERTRIGLYCERIDAEMIA
     Route: 048
     Dates: start: 20100101
  4. ACETAMINOPHEN [Concomitant]
     Indication: HEADACHE
  5. PHENOBARBITAL TAB [Concomitant]
     Indication: CRANIOTOMY
     Route: 048
     Dates: start: 19860101

REACTIONS (6)
  - RASH [None]
  - ALOPECIA [None]
  - ILL-DEFINED DISORDER [None]
  - CHEST PAIN [None]
  - DYSPNOEA [None]
  - VASODILATATION [None]
